FAERS Safety Report 13226266 (Version 4)
Quarter: 2017Q3

REPORT INFORMATION
  Report Type: Spontaneous
  Country: US (occurrence: US)
  Receive Date: 20170213
  Receipt Date: 20170711
  Transmission Date: 20171127
  Serious: Yes (Death, Hospitalization)
  Sender: FDA-Public Use
  Company Number: US-PFIZER INC-2016279951

PATIENT
  Age: 70 Year
  Sex: Male
  Weight: 78.93 kg

DRUGS (24)
  1. GLUCOTROL [Concomitant]
     Active Substance: GLIPIZIDE
     Dosage: 5 MG, 2X/DAY (30 MINUTES BEFORE MEALS)
     Route: 048
  2. PERCOCET [Concomitant]
     Active Substance: ACETAMINOPHEN\OXYCODONE HYDROCHLORIDE
     Indication: PAIN
     Dosage: 1 DF, AS NEEDED (EVERY 4 HOURS, OXYCODONE HYDROCHLORIDE-5 MG,PARACETAMOL-325 MG)
     Route: 048
  3. VFEND [Suspect]
     Active Substance: VORICONAZOLE
     Indication: PAIN
  4. COZAAR [Concomitant]
     Active Substance: LOSARTAN POTASSIUM
     Dosage: 25 MG, 1X/DAY
     Route: 048
  5. ZOFRAN [Concomitant]
     Active Substance: ONDANSETRON HYDROCHLORIDE
     Indication: NAUSEA
     Dosage: 8 MG, AS NEEDED (EVERY 8 HOURS AS NEEDED)
     Route: 048
  6. VALTREX [Concomitant]
     Active Substance: VALACYCLOVIR HYDROCHLORIDE
     Dosage: 500 MG, DAILY
     Route: 048
  7. VFEND [Suspect]
     Active Substance: VORICONAZOLE
     Indication: BRONCHOPULMONARY ASPERGILLOSIS
     Dosage: 250 MG, 2X/DAY (ONE 200 MG TABLET AND ONE 50 MG TABLET EVERY 12 HOURS)
  8. VITAMIN C [Concomitant]
     Active Substance: ASCORBIC ACID
     Dosage: 500 MG, 1X/DAY
     Route: 048
  9. CIPRO [Concomitant]
     Active Substance: CIPROFLOXACIN HYDROCHLORIDE
     Dosage: 500 MG, 2X/DAY
     Route: 048
  10. ZOFRAN [Concomitant]
     Active Substance: ONDANSETRON HYDROCHLORIDE
     Indication: VOMITING
  11. SENOKOT-S [Concomitant]
     Active Substance: DOCUSATE SODIUM\SENNOSIDES
     Dosage: 2 DF, 2X/DAY (SENNA ALEXANDRINA-8.6 MG, DOCUSATE SODIUM- 50MG)
     Route: 048
  12. VFEND [Suspect]
     Active Substance: VORICONAZOLE
     Indication: INFECTION
     Dosage: 300 MG, 2X/DAY (EVERY 12 HOURS FOR 42 DAYS)
     Route: 048
  13. METFORMIN [Concomitant]
     Active Substance: METFORMIN HYDROCHLORIDE
     Indication: DIABETES MELLITUS
     Dosage: 500 MG, 2X/DAY
  14. FUROSEMIDE. [Concomitant]
     Active Substance: FUROSEMIDE
     Indication: FLUID RETENTION
     Dosage: 20 MG, 1X/DAY
  15. CLARITIN [Concomitant]
     Active Substance: LORATADINE
     Dosage: 10 MG, AS NEEDED (ONCE PER DAY AS NEEDED)
     Route: 048
  16. ULTRAM [Concomitant]
     Active Substance: TRAMADOL HYDROCHLORIDE
     Dosage: 50 MG, AS NEEDED (EVERY 6 HOURS AS NEEDED)
     Route: 048
  17. VFEND [Suspect]
     Active Substance: VORICONAZOLE
     Indication: NASOPHARYNGITIS
     Dosage: 300 MG, 2X/DAY (300 MG WHITE TABLET BY MOUTH IN THE MORNING AND 300 MG AT NIGHT A DAY)
     Route: 048
     Dates: start: 201606
  18. VIT B 12 [Concomitant]
     Dosage: 1000 UG, 1X/DAY
     Route: 048
  19. GLUCOPHAGE [Concomitant]
     Active Substance: METFORMIN HYDROCHLORIDE
     Dosage: 500 MG, 2X/DAY (WITH FOOD)
     Route: 048
  20. FLAGYL [Concomitant]
     Active Substance: METRONIDAZOLE\METRONIDAZOLE HYDROCHLORIDE
     Dosage: 500 MG, 3X/DAY
     Route: 048
  21. ATIVAN [Concomitant]
     Active Substance: LORAZEPAM
     Indication: ANXIETY
     Dosage: 1 MG, AS NEEDED (TWICE A DAY AS NEEDED)
     Route: 048
  22. PHENERGAN [Concomitant]
     Active Substance: PROMETHAZINE HYDROCHLORIDE
     Indication: NAUSEA
     Dosage: 12.5 MG, AS NEEDED (EVERY 6 HOURS AS NEEDED)
     Route: 048
  23. PHENERGAN [Concomitant]
     Active Substance: PROMETHAZINE HYDROCHLORIDE
     Indication: VOMITING
  24. GLIPIZIDE. [Concomitant]
     Active Substance: GLIPIZIDE
     Indication: DIABETES MELLITUS
     Dosage: 7.5 MG, 2X/DAY

REACTIONS (12)
  - Dysphagia [Unknown]
  - Weight decreased [Unknown]
  - Eating disorder [Unknown]
  - Stomatitis [Unknown]
  - Mouth swelling [Recovering/Resolving]
  - Malaise [Recovering/Resolving]
  - Pyrexia [Recovered/Resolved]
  - Oral neoplasm [Fatal]
  - Pharyngeal oedema [Fatal]
  - Pneumonia [Recovering/Resolving]
  - Dyspnoea [Unknown]
  - Pyrexia [Unknown]

NARRATIVE: CASE EVENT DATE: 201701
